FAERS Safety Report 4838398-2 (Version None)
Quarter: 2005Q4

REPORT INFORMATION
  Report Type: 
  Country: None (occurrence: None)
  Receive Date: 20051128
  Receipt Date: 20050418
  Transmission Date: 20060501
  Serious: Yes (Life-Threatening, Hospitalization, Other)
  Sender: FDA-Public Use
  Company Number: PHHO2005US06330

PATIENT
  Age: 47 Year
  Sex: Female
  Weight: 74 kg

DRUGS (2)
  1. ICL670A VS DEFEROXAMINE [Suspect]
     Indication: HAEMOSIDEROSIS
     Dosage: 10 MG/KG DAILY
     Route: 048
     Dates: start: 20040716, end: 20050223
  2. ICL670A VS DEFEROXAMINE [Suspect]
     Dosage: 20 MG/KG DAILY
     Route: 048
     Dates: start: 20050224

REACTIONS (9)
  - BACTERAEMIA [None]
  - CHEST PAIN [None]
  - CONCOMITANT DISEASE PROGRESSION [None]
  - DYSPNOEA [None]
  - FEELING HOT [None]
  - LOBAR PNEUMONIA [None]
  - NIGHT SWEATS [None]
  - PULMONARY EMBOLISM [None]
  - THROMBOSIS [None]
